FAERS Safety Report 13005786 (Version 1)
Quarter: 2016Q4

REPORT INFORMATION
  Report Type: Spontaneous
  Country: FR (occurrence: FR)
  Receive Date: 20161207
  Receipt Date: 20161207
  Transmission Date: 20170207
  Serious: Yes (Hospitalization)
  Sender: FDA-Public Use
  Company Number: FR-PFIZER INC-2016559952

PATIENT
  Age: 78 Year
  Sex: Female

DRUGS (14)
  1. DOLIPRANE [Concomitant]
     Active Substance: ACETAMINOPHEN
     Dosage: UNK UNK, AS NEEDED
  2. CARBOPLATINE HOSPIRA [Suspect]
     Active Substance: CARBOPLATIN
     Indication: OVARIAN CANCER
     Dosage: 590 MG, CYCLIC
     Route: 042
     Dates: start: 20160106, end: 20160719
  3. PACLITAXEL HOSPIRA [Suspect]
     Active Substance: PACLITAXEL
     Indication: OVARIAN CANCER
     Dosage: 222 MG, CYCLIC
     Route: 042
     Dates: start: 20160106, end: 20160719
  4. SETOFILM [Suspect]
     Active Substance: ONDANSETRON
     Dosage: 8 MG, DAILY
     Route: 048
     Dates: start: 201601, end: 201607
  5. ENDOTELON [Concomitant]
     Active Substance: HERBALS
  6. METHYLPREDNISOLONE MYLAN /00049602/ [Suspect]
     Active Substance: METHYLPREDNISOLONE SODIUM SUCCINATE
     Dosage: 120 MG, CYCLIC
     Route: 042
     Dates: start: 20160106, end: 20160719
  7. CETIRIZINE [Suspect]
     Active Substance: CETIRIZINE HYDROCHLORIDE
     Dosage: 10 MG, CYCLIC
     Route: 048
     Dates: start: 201601, end: 201607
  8. EMEND [Suspect]
     Active Substance: APREPITANT
     Dosage: 125 MG, DAILY
     Route: 048
     Dates: start: 201601, end: 201607
  9. AVASTIN /00848101/ [Concomitant]
     Active Substance: SIMVASTATIN
     Dosage: 15 MG/KG, UNK
     Dates: start: 20160615
  10. EUPANTOL [Concomitant]
     Active Substance: PANTOPRAZOLE SODIUM
  11. MOTILIUM [Concomitant]
     Active Substance: DOMPERIDONE
     Dosage: UNK UNK, AS NEEDED
  12. SPASFON /00765801/ [Concomitant]
     Active Substance: PHLOROGLUCINOL\1,3,5-TRIMETHOXYBENZENE
     Dosage: UNK UNK, AS NEEDED
  13. EUPHYTOSE /05965601/ [Concomitant]
     Active Substance: HERBALS
  14. LACTULOSE. [Concomitant]
     Active Substance: LACTULOSE

REACTIONS (5)
  - Bradykinesia [Recovering/Resolving]
  - Myoclonus [Recovering/Resolving]
  - Gait disturbance [Recovering/Resolving]
  - Parkinsonism [Recovering/Resolving]
  - Tremor [Recovering/Resolving]

NARRATIVE: CASE EVENT DATE: 2016
